FAERS Safety Report 5352898-0 (Version None)
Quarter: 2007Q2

REPORT INFORMATION
  Report Type: 
  Country: None (occurrence: None)
  Receive Date: 20070518
  Receipt Date: 20070420
  Transmission Date: 20071010
  Serious: No
  Sender: FDA-Public Use
  Company Number: TPA2007A00853

PATIENT
  Age: 61 Year
  Sex: Female

DRUGS (9)
  1. ROZEREM [Suspect]
     Indication: INSOMNIA
     Dosage: 8 MG, HS, PER ORAL
     Route: 048
     Dates: start: 20070413
  2. AGGRENOX [Concomitant]
  3. CELEBREX [Concomitant]
  4. CYMBALTA [Concomitant]
  5. METOCLOPRAMIDE [Concomitant]
  6. FUROSEMIDE [Concomitant]
  7. ENABLEX (ALL OTHER THERAPEUTIC PRODUCTS) [Concomitant]
  8. REQUIP [Concomitant]
  9. SONATA (ZALEPLON) (TABLETS) [Concomitant]

REACTIONS (1)
  - DRUG INEFFECTIVE [None]
